FAERS Safety Report 5314669-0 (Version None)
Quarter: 2007Q2

REPORT INFORMATION
  Report Type: 
  Country: None (occurrence: None)
  Receive Date: 20070426
  Receipt Date: 20070412
  Transmission Date: 20071010
  Serious: Yes (Hospitalization)
  Sender: FDA-Public Use
  Company Number: POMP-11002

PATIENT
  Age: 6 Month
  Sex: Female
  Weight: 7.9 kg

DRUGS (2)
  1. MYOZYME [Suspect]
     Indication: GLYCOGEN STORAGE DISEASE TYPE II
     Dates: start: 20060920
  2. PROPRANOLOL [Concomitant]

REACTIONS (19)
  - BACTERAEMIA [None]
  - BLOOD CULTURE POSITIVE [None]
  - BLOOD PRESSURE DECREASED [None]
  - CANDIDIASIS [None]
  - CARDIAC MURMUR [None]
  - CATHETER RELATED INFECTION [None]
  - ENTEROCOCCAL INFECTION [None]
  - ESCHERICHIA INFECTION [None]
  - FEBRILE CONVULSION [None]
  - HEART RATE DECREASED [None]
  - HYPERHIDROSIS [None]
  - INFUSION RELATED REACTION [None]
  - KLEBSIELLA INFECTION [None]
  - PSEUDOMONAS INFECTION [None]
  - PYREXIA [None]
  - RESPIRATORY RATE DECREASED [None]
  - TREMOR [None]
  - VIRAL INFECTION [None]
  - VOMITING [None]
